FAERS Safety Report 18353621 (Version 1)
Quarter: 2020Q4

REPORT INFORMATION
  Report Type: Spontaneous
  Country: US (occurrence: US)
  Receive Date: 20201006
  Receipt Date: 20201006
  Transmission Date: 20210114
  Serious: No
  Sender: FDA-Public Use
  Company Number: US-ROCHE-2560645

PATIENT
  Sex: Female

DRUGS (16)
  1. LISINOPRIL. [Concomitant]
     Active Substance: LISINOPRIL
  2. ALPRAZOLAM. [Concomitant]
     Active Substance: ALPRAZOLAM
  3. ONDANSETRON [Concomitant]
     Active Substance: ONDANSETRON
  4. ZELBORAF [Suspect]
     Active Substance: VEMURAFENIB
     Indication: COLON CANCER
     Dosage: TAKE 3 TABLETS BY MOUTH TWICE A DAY; 2 MONTHS
     Route: 048
  5. CLONIDINE HCL [Concomitant]
     Active Substance: CLONIDINE HYDROCHLORIDE
  6. METOPROLOL SUCCINATE ER [Concomitant]
     Active Substance: METOPROLOL SUCCINATE
  7. SIMVASTATIN. [Concomitant]
     Active Substance: SIMVASTATIN
  8. PANTOPRAZOLE SODIUM. [Concomitant]
     Active Substance: PANTOPRAZOLE SODIUM
  9. DRONABINOL. [Concomitant]
     Active Substance: DRONABINOL
  10. ELIQUIS [Concomitant]
     Active Substance: APIXABAN
  11. SPIRONOLACTONE. [Concomitant]
     Active Substance: SPIRONOLACTONE
  12. MAGNESIUM [Concomitant]
     Active Substance: MAGNESIUM
  13. OLANZAPINE. [Concomitant]
     Active Substance: OLANZAPINE
  14. SENNA [Concomitant]
     Active Substance: SENNA LEAF\SENNOSIDES\SENNOSIDES A AND B
  15. EZETIMIBE. [Concomitant]
     Active Substance: EZETIMIBE
  16. GABAPENTIN. [Concomitant]
     Active Substance: GABAPENTIN

REACTIONS (3)
  - Off label use [Unknown]
  - Fatigue [Not Recovered/Not Resolved]
  - Intentional product use issue [Unknown]
